FAERS Safety Report 6797546 (Version 6)
Quarter: 2013Q4

REPORT INFORMATION
  Report Type: Report from Study
  Country: US (occurrence: US)
  Receive Date: 20081028
  Receipt Date: 20131106
  Transmission Date: 20140711
  Serious: Yes (Hospitalization, Other)
  Sender: FDA-Public Use
  Company Number: US-JNJFOC-20081000157

PATIENT
  Age: 50 Year
  Sex: Male
  Weight: 86.64 kg

DRUGS (7)
  1. INFLIXIMAB [Suspect]
     Indication: PSORIASIS
     Route: 042
  2. INFLIXIMAB [Suspect]
     Indication: PSORIASIS
     Route: 042
     Dates: start: 20020920
  3. INFLIXIMAB [Suspect]
     Indication: PSORIASIS
     Route: 042
     Dates: start: 200809
  4. DIOVAN [Concomitant]
  5. CADUET [Concomitant]
  6. COMBIVENT [Concomitant]
  7. AZMACORT [Concomitant]

REACTIONS (7)
  - Pneumonia legionella [Recovered/Resolved with Sequelae]
  - Pulmonary embolism [Recovered/Resolved]
  - Renal failure acute [Recovered/Resolved]
  - Paratracheal lymphadenopathy [Recovered/Resolved]
  - Dehydration [Recovered/Resolved]
  - Gastroenteritis [Recovered/Resolved]
  - Thrombocytopenia [Recovered/Resolved]
